FAERS Safety Report 18266175 (Version 1)
Quarter: 2020Q3

REPORT INFORMATION
  Report Type: Spontaneous
  Country: SE (occurrence: SE)
  Receive Date: 20200915
  Receipt Date: 20200915
  Transmission Date: 20201103
  Serious: Yes (Life-Threatening, Hospitalization, Other)
  Sender: FDA-Public Use
  Company Number: SE-ALVOGEN-2020-ALVOGEN-113987

PATIENT
  Age: 37 Year
  Sex: Female

DRUGS (8)
  1. ATROPINE. [Concomitant]
     Active Substance: ATROPINE
     Indication: BRADYCARDIA
  2. DINOPROSTONE. [Concomitant]
     Active Substance: DINOPROSTONE
     Indication: LABOUR INDUCTION
  3. OXYTOCIN. [Concomitant]
     Active Substance: OXYTOCIN
     Indication: LABOUR INDUCTION
  4. CALCIUM CHLORIDE DIHYDRATE/POTASSIUM CHLORIDE/SODIUM CHLORIDE/SODIUM LACTATE [Concomitant]
     Indication: PRODUCT USED FOR UNKNOWN INDICATION
  5. MISOPROSTOL. [Concomitant]
     Active Substance: MISOPROSTOL
     Indication: LABOUR INDUCTION
  6. FENTANYL. [Suspect]
     Active Substance: FENTANYL
     Indication: ANAESTHESIA
     Dosage: 50 MICRO GRAM
     Route: 065
  7. ROPIVACAINE. [Suspect]
     Active Substance: ROPIVACAINE HYDROCHLORIDE
     Indication: ANAESTHESIA
     Dosage: TOP UP BOLUS OF 3 + 12 ML ROPIVACAINE 7.5 MG/ML
     Route: 008
  8. PHENYLEPHRINE [Concomitant]
     Active Substance: PHENYLEPHRINE HYDROCHLORIDE
     Indication: BLOOD PRESSURE ABNORMAL

REACTIONS (3)
  - Exposure during pregnancy [Recovered/Resolved]
  - Circulatory collapse [Recovered/Resolved]
  - Presyncope [Recovered/Resolved]
